FAERS Safety Report 6413050-0 (Version None)
Quarter: 2009Q4

REPORT INFORMATION
  Report Type: 
  Country: None (occurrence: None)
  Receive Date: 20091023
  Receipt Date: 20091023
  Transmission Date: 20100525
  Serious: Yes (Other)
  Sender: FDA-Public Use
  Company Number: None

PATIENT
  Sex: Female
  Weight: 56.6996 kg

DRUGS (2)
  1. ACTONEL [Suspect]
     Indication: OSTEOPOROSIS
     Dosage: 150 MG 1 X PER MONTH, 1ST DOSE
     Dates: start: 20090906
  2. ACTONEL [Suspect]
     Indication: OSTEOPOROSIS
     Dosage: 150 MG MG 1 PER MONTH, 2ND DOSE
     Dates: start: 20091004

REACTIONS (3)
  - ARTHRALGIA [None]
  - MUSCLE TIGHTNESS [None]
  - MYALGIA [None]
